FAERS Safety Report 5498639-8 (Version None)
Quarter: 2007Q4

REPORT INFORMATION
  Report Type: 
  Country: None (occurrence: None)
  Receive Date: 20071026
  Receipt Date: 20071015
  Transmission Date: 20080405
  Serious: Yes (Hospitalization)
  Sender: FDA-Public Use
  Company Number: ES-TYCO HEALTHCARE/MALLINCKRODT-T200701270

PATIENT

DRUGS (1)
  1. OPTIRAY 300 [Suspect]
     Dosage: 100 ML, SINGLE
     Dates: start: 20070322, end: 20070322

REACTIONS (3)
  - EYELID OEDEMA [None]
  - PRURITUS [None]
  - RASH [None]
